FAERS Safety Report 24702799 (Version 1)
Quarter: 2024Q4

REPORT INFORMATION
  Report Type: Spontaneous
  Country: DE (occurrence: DE)
  Receive Date: 20241205
  Receipt Date: 20241205
  Transmission Date: 20250115
  Serious: Yes (Hospitalization)
  Sender: ABBVIE
  Company Number: DE-ABBVIE-6029522

PATIENT
  Age: 47 Year
  Sex: Female

DRUGS (1)
  1. SKYRIZI [Suspect]
     Active Substance: RISANKIZUMAB-RZAA
     Indication: Product used for unknown indication
     Route: 058
     Dates: start: 202404

REACTIONS (4)
  - Arthropathy [Recovered/Resolved]
  - Therapeutic product effect incomplete [Unknown]
  - Dactylitis [Unknown]
  - Enthesopathy [Unknown]

NARRATIVE: CASE EVENT DATE: 20240101
